FAERS Safety Report 6176598-2 (Version None)
Quarter: 2009Q2

REPORT INFORMATION
  Report Type: 
  Country: None (occurrence: None)
  Receive Date: 20090501
  Receipt Date: 20090422
  Transmission Date: 20091009
  Serious: Yes (Life-Threatening, Hospitalization)
  Sender: FDA-Public Use
  Company Number: PHHY2009BE15428

PATIENT
  Age: 39 Year
  Sex: Female

DRUGS (2)
  1. METHERGINE [Suspect]
     Dosage: UNK
     Dates: start: 20090327
  2. CYTOTEC [Concomitant]
     Indication: ABORTION MISSED
     Dosage: 2 DF, BID

REACTIONS (15)
  - ABDOMINAL PAIN UPPER [None]
  - ALANINE AMINOTRANSFERASE INCREASED [None]
  - ASPARTATE AMINOTRANSFERASE INCREASED [None]
  - BLOOD LACTATE DEHYDROGENASE INCREASED [None]
  - BLOOD POTASSIUM DECREASED [None]
  - BLOOD PRESSURE DECREASED [None]
  - BRADYCARDIA [None]
  - CARDIOVASCULAR INSUFFICIENCY [None]
  - CYANOSIS [None]
  - ENDOTRACHEAL INTUBATION [None]
  - EXTRASYSTOLES [None]
  - FATIGUE [None]
  - GAMMA-GLUTAMYLTRANSFERASE INCREASED [None]
  - LIVER FUNCTION TEST ABNORMAL [None]
  - OXYGEN SATURATION DECREASED [None]
